FAERS Safety Report 7267359-1 (Version None)
Quarter: 2011Q1

REPORT INFORMATION
  Report Type: 
  Country: None (occurrence: None)
  Receive Date: 20110201
  Receipt Date: 20100521
  Transmission Date: 20110831
  Serious: No
  Sender: FDA-Public Use
  Company Number: A0863608A

PATIENT
  Sex: Female

DRUGS (5)
  1. ARIXTRA [Suspect]
     Indication: PROPHYLAXIS
     Dosage: 2.5MG UNKNOWN
     Route: 058
     Dates: start: 20100513, end: 20100523
  2. VENLAFAXINE [Concomitant]
     Dosage: 75MG PER DAY
  3. ESTRADIOL [Concomitant]
     Dosage: 1MG PER DAY
  4. ZYRTEC [Concomitant]
     Dosage: 10MG AS REQUIRED
  5. LORTAB [Concomitant]
     Dosage: 5MG AS REQUIRED

REACTIONS (1)
  - INSOMNIA [None]
